APPROVED DRUG PRODUCT: DUEXIS
Active Ingredient: FAMOTIDINE; IBUPROFEN
Strength: 26.6MG;800MG **Federal Register determination that product was not discontinued or withdrawn for safety or effectiveness reasons**
Dosage Form/Route: TABLET;ORAL
Application: N022519 | Product #001
Applicant: HORIZON MEDICINES LLC
Approved: Apr 23, 2011 | RLD: Yes | RS: No | Type: DISCN

PATENTS:
Patent 8318202 | Expires: Jul 18, 2026
Patent 8309127 | Expires: Jul 18, 2026
Patent 8449910 | Expires: Jul 18, 2026
Patent 8067451 | Expires: Jul 18, 2026
Patent 8501228 | Expires: Jul 18, 2026